FAERS Safety Report 9632395 (Version 2)
Quarter: 2013Q4

REPORT INFORMATION
  Report Type: Spontaneous
  Country: FR (occurrence: None)
  Receive Date: 20131016
  Receipt Date: 20131211
  Transmission Date: 20140711
  Serious: Yes (Other)
  Sender: FDA-Public Use
  Company Number: DSM-2013-00937

PATIENT
  Age: 51 Year
  Sex: Female

DRUGS (1)
  1. COOLMETEC (HYDROCHLOROTHIAZIDE, OLMESARTAN MEDOXOMIL) (TABLET) (HYDROCHLOROTHIAZIDE, OLMESARTAN MEDOXOMIL) [Suspect]
     Indication: HYPERTENSION
     Route: 048
     Dates: start: 201301, end: 201302

REACTIONS (5)
  - Gamma-glutamyltransferase increased [None]
  - Blood creatine phosphokinase increased [None]
  - Abdominal pain upper [None]
  - Constipation [None]
  - Gastrointestinal pain [None]
